FAERS Safety Report 17892222 (Version 1)
Quarter: 2020Q2

REPORT INFORMATION
  Report Type: Spontaneous
  Country: GB (occurrence: GB)
  Receive Date: 20200613
  Receipt Date: 20200613
  Transmission Date: 20200714
  Serious: Yes (Other)
  Sender: FDA-Public Use
  Company Number: GB-AUROBINDO-AUR-APL-2020-028486

PATIENT
  Sex: Male

DRUGS (1)
  1. GABAPENTIN FILM-COATED TABLET [Suspect]
     Active Substance: GABAPENTIN
     Indication: PRODUCT USED FOR UNKNOWN INDICATION
     Dosage: 1800 MICROGRAM, ONCE A DAY
     Route: 048

REACTIONS (6)
  - Palpitations [Unknown]
  - Head injury [Unknown]
  - Malaise [Unknown]
  - Panic attack [Unknown]
  - Dyspnoea [Unknown]
  - Product dispensing error [Unknown]
